FAERS Safety Report 9307446 (Version 1)
Quarter: 2013Q2

REPORT INFORMATION
  Report Type: Spontaneous
  Country: US (occurrence: US)
  Receive Date: 20130524
  Receipt Date: 20130524
  Transmission Date: 20140414
  Serious: No
  Sender: FDA-Public Use
  Company Number: US-009507513-1305USA013368

PATIENT
  Sex: Female

DRUGS (4)
  1. SAPHRIS [Suspect]
     Dosage: 10 MG, BID
  2. SAPHRIS [Suspect]
     Dosage: 5 MG, QD
  3. CITALOPRAM [Concomitant]
  4. ADDERALL TABLETS [Concomitant]

REACTIONS (5)
  - Bite [Not Recovered/Not Resolved]
  - Akathisia [Not Recovered/Not Resolved]
  - Hunger [Not Recovered/Not Resolved]
  - Weight increased [Not Recovered/Not Resolved]
  - Restless legs syndrome [Not Recovered/Not Resolved]
